FAERS Safety Report 10346826 (Version 2)
Quarter: 2014Q4

REPORT INFORMATION
  Report Type: Spontaneous
  Country: US (occurrence: US)
  Receive Date: 20140729
  Receipt Date: 20141110
  Transmission Date: 20150528
  Serious: Yes (Other)
  Sender: FDA-Public Use
  Company Number: US-AMGEN-USASP2014056422

PATIENT
  Age: 64 Year
  Sex: Female

DRUGS (2)
  1. ENBREL [Suspect]
     Active Substance: ETANERCEPT
     Indication: RHEUMATOID ARTHRITIS
     Dosage: 50 MG, QWK
     Route: 065
     Dates: start: 201402, end: 20141021
  2. METHOTREXATE [Concomitant]
     Active Substance: METHOTREXATE
     Dosage: MG  INJECTION WEEKLY
     Route: 065
     Dates: start: 20131122

REACTIONS (33)
  - Tremor [Not Recovered/Not Resolved]
  - Exostosis [Not Recovered/Not Resolved]
  - Cough [Unknown]
  - Vision blurred [Not Recovered/Not Resolved]
  - Dyspnoea [Unknown]
  - Micturition disorder [Unknown]
  - Fall [Recovered/Resolved]
  - Lymphadenopathy [Recovered/Resolved]
  - Hallucination [Unknown]
  - Hallucination, auditory [Unknown]
  - Pain [Not Recovered/Not Resolved]
  - Peripheral swelling [Not Recovered/Not Resolved]
  - Hypoaesthesia [Unknown]
  - Somnolence [Not Recovered/Not Resolved]
  - Discomfort [Unknown]
  - Thinking abnormal [Unknown]
  - Crying [Unknown]
  - Muscle spasms [Unknown]
  - Visual impairment [Unknown]
  - Nightmare [Unknown]
  - Burning sensation [Unknown]
  - Chondropathy [Not Recovered/Not Resolved]
  - Fatigue [Not Recovered/Not Resolved]
  - Heart rate increased [Unknown]
  - Feeling abnormal [Unknown]
  - Disturbance in attention [Not Recovered/Not Resolved]
  - Pain in extremity [Not Recovered/Not Resolved]
  - Panic attack [Unknown]
  - Malaise [Unknown]
  - Memory impairment [Not Recovered/Not Resolved]
  - Chest pain [Unknown]
  - Oral herpes [Recovered/Resolved]
  - Paraesthesia [Unknown]

NARRATIVE: CASE EVENT DATE: 2014
